FAERS Safety Report 23357139 (Version 1)
Quarter: 2024Q1

REPORT INFORMATION
  Report Type: Spontaneous
  Country: US (occurrence: US)
  Receive Date: 20240102
  Receipt Date: 20240102
  Transmission Date: 20240409
  Serious: Yes (Hospitalization, Other)
  Sender: FDA-Public Use
  Company Number: US-SA-SAC20240101000370

PATIENT
  Age: 63 Year
  Sex: Female

DRUGS (13)
  1. DUPIXENT [Suspect]
     Active Substance: DUPILUMAB
     Indication: Asthma
     Dosage: 200 MG, QOW
     Route: 058
     Dates: start: 20210222, end: 2023
  2. ASPIRIN [Concomitant]
     Active Substance: ASPIRIN
  3. AZELASTINE [Concomitant]
     Active Substance: AZELASTINE\AZELASTINE HYDROCHLORIDE
  4. BUSPIRONE HCL [Concomitant]
     Active Substance: BUSPIRONE HYDROCHLORIDE
  5. FENOFIBRATE [Concomitant]
     Active Substance: FENOFIBRATE
  6. FLUTICASONE [Concomitant]
     Active Substance: FLUTICASONE
  7. LEVALBUTEROL [Concomitant]
     Active Substance: LEVALBUTEROL
  8. MONTELUKAST [Concomitant]
     Active Substance: MONTELUKAST SODIUM
  9. PANTOPRAZOLE [Concomitant]
     Active Substance: PANTOPRAZOLE
  10. SYMBICORT [Concomitant]
     Active Substance: BUDESONIDE\FORMOTEROL FUMARATE DIHYDRATE
  11. VITAMIN B CO [Concomitant]
  12. VITAMIN D NOS [Concomitant]
     Active Substance: VITAMIN D NOS
  13. VITAMINS NOS [Concomitant]
     Active Substance: VITAMINS

REACTIONS (1)
  - Pneumonia [Not Recovered/Not Resolved]
